FAERS Safety Report 8791786 (Version 1)
Quarter: 2012Q4

REPORT INFORMATION
  Report Type: 
  Country: US (occurrence: US)
  Receive Date: 20120918
  Receipt Date: 20120918
  Transmission Date: 20130627
  Serious: Yes (Other)
  Sender: FDA-Public Use
  Company Number: US-ELI_LILLY_AND_COMPANY-US201209001793

PATIENT
  Age: 4 Year
  Sex: Female
  Weight: 17.01 kg

DRUGS (4)
  1. STRATTERA [Suspect]
     Indication: ATTENTION DEFICIT/HYPERACTIVITY DISORDER
     Dosage: 10 mg, qd
  2. STRATTERA [Suspect]
     Dosage: 18 mg, qd
  3. STRATTERA [Suspect]
     Dosage: 20 mg, qd
  4. STRATTERA [Suspect]
     Dosage: 25 mg, qd

REACTIONS (4)
  - Tonsillectomy [Unknown]
  - Weight decreased [Unknown]
  - Middle insomnia [Unknown]
  - Wrong technique in drug usage process [Recovered/Resolved]
